FAERS Safety Report 9268550 (Version 2)
Quarter: 2013Q2

REPORT INFORMATION
  Report Type: Spontaneous
  Country: US (occurrence: US)
  Receive Date: 20130502
  Receipt Date: 20130605
  Transmission Date: 20140414
  Serious: Yes (Hospitalization, Other)
  Sender: FDA-Public Use
  Company Number: US-US-EMD SERONO, INC.-7088842

PATIENT
  Age: 60 Year
  Sex: Female
  Weight: 67 kg

DRUGS (6)
  1. REBIF [Suspect]
     Indication: MULTIPLE SCLEROSIS
     Route: 058
     Dates: start: 20110324
  2. PAROXETINE [Concomitant]
     Indication: ANXIETY
  3. PAROXETINE [Concomitant]
     Indication: DEPRESSION
  4. ADVAIR [Concomitant]
     Indication: ASTHMA
  5. NITROGLYCERIN [Concomitant]
     Indication: CHEST PAIN
  6. ASPIRIN                            /00002701/ [Concomitant]
     Indication: CHEST PAIN

REACTIONS (8)
  - Malignant melanoma [Recovered/Resolved]
  - Multiple sclerosis relapse [Recovered/Resolved]
  - Conjunctival haemorrhage [Unknown]
  - Nasopharyngitis [Unknown]
  - Stress [Unknown]
  - Multiple sclerosis [Unknown]
  - Fatigue [Unknown]
  - Influenza like illness [Unknown]
